FAERS Safety Report 5395665-4 (Version None)
Quarter: 2007Q3

REPORT INFORMATION
  Report Type: 
  Country: None (occurrence: None)
  Receive Date: 20070724
  Receipt Date: 20070717
  Transmission Date: 20080115
  Serious: Yes (Hospitalization, Other)
  Sender: FDA-Public Use
  Company Number: ZA-BOEHRINGER INGELHEIM PHARMACEUTICALS, INC.-2007-DE-04230GD

PATIENT

DRUGS (3)
  1. NEVIRAPINE [Suspect]
     Indication: PROPHYLAXIS
     Route: 064
  2. NEVIRAPINE [Suspect]
     Indication: HUMAN IMMUNODEFICIENCY VIRUS TRANSMISSION
  3. COTRIM [Concomitant]
     Indication: PROPHYLAXIS

REACTIONS (4)
  - DRUG INEFFECTIVE [None]
  - HIV INFECTION [None]
  - HUMAN IMMUNODEFICIENCY VIRUS TRANSMISSION [None]
  - INFECTION [None]
